FAERS Safety Report 10304751 (Version 1)
Quarter: 2014Q3

REPORT INFORMATION
  Report Type: Spontaneous
  Country: US (occurrence: None)
  Receive Date: 20140710
  Receipt Date: 20140710
  Transmission Date: 20150326
  Serious: Yes (Hospitalization, Other)
  Sender: FDA-Public Use
  Company Number: AUR-APL-2014-07132

PATIENT
  Age: 40 Year
  Sex: Female
  Weight: 93.4 kg

DRUGS (8)
  1. TENORMIN [Suspect]
     Active Substance: ATENOLOL
     Indication: PALPITATIONS
     Route: 048
     Dates: start: 1984
  2. FELODIPINE (FELODIPINE) [Suspect]
     Active Substance: FELODIPINE
     Indication: HYPERTENSION
     Dates: start: 2008
  3. NORVASC [Suspect]
     Active Substance: AMLODIPINE BESYLATE
     Indication: PRODUCT USED FOR UNKNOWN INDICATION
  4. SYNTHROID [Concomitant]
     Active Substance: LEVOTHYROXINE SODIUM
  5. CLONIDINE (CLONIDINE) [Concomitant]
     Active Substance: CLONIDINE
  6. LISINOPRIL. [Suspect]
     Active Substance: LISINOPRIL
     Indication: HYPERTENSION
  7. COZAAR [Suspect]
     Active Substance: LOSARTAN POTASSIUM
     Indication: PRODUCT USED FOR UNKNOWN INDICATION
  8. PLENDIL [Suspect]
     Active Substance: FELODIPINE
     Indication: HYPERTENSION
     Dates: start: 1995, end: 2008

REACTIONS (4)
  - Meningioma [None]
  - Anxiety [None]
  - Ventricular extrasystoles [None]
  - Off label use [None]

NARRATIVE: CASE EVENT DATE: 1984
